FAERS Safety Report 16925596 (Version 1)
Quarter: 2019Q4

REPORT INFORMATION
  Report Type: Spontaneous
  Country: US (occurrence: US)
  Receive Date: 20190823
  Receipt Date: 20190823
  Transmission Date: 20200122
  Serious: No
  Sender: FDA-Public Use
  Company Number: None

PATIENT
  Sex: Female

DRUGS (2)
  1. HYDROXYPROGEST++ CAPR SDV 250MG/ML [Suspect]
     Active Substance: HYDROXYPROGESTERONE CAPROATE
     Indication: HEPATITIS VIRAL
     Route: 030
     Dates: start: 20190710
  2. HYDROXYPROGEST++ CAPR SDV 250MG/ML [Suspect]
     Active Substance: HYDROXYPROGESTERONE CAPROATE
     Indication: HEPATITIS C
     Route: 030
     Dates: start: 20190710

REACTIONS (2)
  - Throat tightness [None]
  - Swelling face [None]
